FAERS Safety Report 7053592-0 (Version None)
Quarter: 2010Q4

REPORT INFORMATION
  Report Type: 
  Country: None (occurrence: None)
  Receive Date: 20101020
  Receipt Date: 20101012
  Transmission Date: 20110411
  Serious: Yes (Death, Hospitalization)
  Sender: FDA-Public Use
  Company Number: CH-BAXTER-2010BH025622

PATIENT
  Age: 55 Year
  Sex: Male

DRUGS (3)
  1. HOLOXAN BAXTER [Suspect]
     Indication: PRODUCT USED FOR UNKNOWN INDICATION
     Route: 065
     Dates: start: 20090415, end: 20090417
  2. BLEOMYCIN GENERIC [Suspect]
     Indication: TESTIS CANCER
     Route: 042
     Dates: start: 20090415, end: 20090417
  3. PACLITAXEL [Suspect]
     Indication: TESTIS CANCER
     Route: 042
     Dates: start: 20090415, end: 20090417

REACTIONS (10)
  - ACUTE RESPIRATORY DISTRESS SYNDROME [None]
  - APLASIA [None]
  - BLOOD PRESSURE INCREASED [None]
  - COUGH [None]
  - DRUG TOXICITY [None]
  - PNEUMONIA [None]
  - PULMONARY FIBROSIS [None]
  - PULMONARY TOXICITY [None]
  - RESPIRATORY FAILURE [None]
  - STENOTROPHOMONAS INFECTION [None]
